FAERS Safety Report 6133859-0 (Version None)
Quarter: 2009Q1

REPORT INFORMATION
  Report Type: 
  Country: None (occurrence: None)
  Receive Date: 20090326
  Receipt Date: 20090312
  Transmission Date: 20090719
  Serious: Yes (Hospitalization)
  Sender: FDA-Public Use
  Company Number: US-PFIZER INC-2008045741

PATIENT
  Sex: Female
  Weight: 51 kg

DRUGS (9)
  1. SUNITINIB MALATE [Suspect]
     Indication: GASTROINTESTINAL STROMAL TUMOUR
     Dosage: 37.5 MG, 1X/DAY
     Route: 048
     Dates: start: 20060105, end: 20080220
  2. CALCIUM [Concomitant]
     Dosage: 100 MG, 3X/DAY
     Route: 048
     Dates: start: 20070322
  3. CLONAZEPAM [Concomitant]
     Dosage: 25 MG, QHS PRN
     Route: 048
     Dates: start: 20070322
  4. ANEXSIA [Concomitant]
     Dosage: ONE TAB PRN
     Route: 048
     Dates: start: 20070322
  5. LEVOTHYROXINE [Concomitant]
     Dosage: 100 MG, 1X/DAY
     Route: 048
     Dates: start: 20080124
  6. METOPROLOL TARTRATE [Concomitant]
     Dosage: 50 MG, 2X/DAY
     Route: 048
     Dates: start: 20070322
  7. PRILOSEC [Concomitant]
     Dosage: 20 MG, 2X/DAY
     Route: 048
     Dates: start: 20070322
  8. ZOLOFT [Concomitant]
     Dosage: 50 MG, 1X/DAY
     Route: 048
     Dates: start: 20080124
  9. TYLENOL PM, EXTRA STRENGTH [Concomitant]
     Dosage: QHS PRN
     Route: 048
     Dates: start: 20070322

REACTIONS (1)
  - ACUTE MYOCARDIAL INFARCTION [None]
